FAERS Safety Report 4387744-5 (Version None)
Quarter: 2004Q2

REPORT INFORMATION
  Report Type: 
  Country: None (occurrence: None)
  Receive Date: 20040625
  Receipt Date: 20040610
  Transmission Date: 20050107
  Serious: Yes (Hospitalization)
  Sender: FDA-Public Use
  Company Number: PHRM2004FR01936

PATIENT
  Age: 89 Year
  Sex: Female
  Weight: 50.0318 kg

DRUGS (6)
  1. VISUDYNE [Suspect]
     Indication: MACULAR DEGENERATION
     Dates: start: 20040522, end: 20040522
  2. HYPERIUM [Suspect]
     Indication: HYPERTENSION
     Dosage: 1 MG DAILY PO
     Route: 048
     Dates: start: 20040521, end: 20040523
  3. ART 50 [Concomitant]
  4. APROVEL [Concomitant]
  5. ZANIDIP [Concomitant]
  6. PRAVASTATIN [Concomitant]

REACTIONS (5)
  - ABNORMAL BEHAVIOUR [None]
  - CONFUSIONAL STATE [None]
  - HALLUCINATION, VISUAL [None]
  - INFUSION RELATED REACTION [None]
  - NIGHTMARE [None]
